FAERS Safety Report 15208937 (Version 1)
Quarter: 2018Q3

REPORT INFORMATION
  Report Type: Spontaneous
  Country: US (occurrence: US)
  Receive Date: 20180727
  Receipt Date: 20180727
  Transmission Date: 20181010
  Serious: Yes (Other)
  Sender: FDA-Public Use
  Company Number: US-ASTRAZENECA-2018SE94691

PATIENT
  Age: 70 Year
  Sex: Female

DRUGS (8)
  1. BYDUREON BCISE [Suspect]
     Active Substance: EXENATIDE
     Route: 065
  2. LANTUS [Concomitant]
     Active Substance: INSULIN GLARGINE
     Dosage: AT NIGHT
  3. ELIQUIS [Concomitant]
     Active Substance: APIXABAN
  4. METFORMIN [Concomitant]
     Active Substance: METFORMIN HYDROCHLORIDE
     Indication: DIABETES MELLITUS
  5. SYNTHROID [Concomitant]
     Active Substance: LEVOTHYROXINE SODIUM
     Dosage: DAILY
  6. STOOL SOFTENER (DOCUSATE) [Concomitant]
     Active Substance: DOCUSATE
     Dosage: DAILY
  7. BYETTA [Suspect]
     Active Substance: EXENATIDE
     Dosage: TWO TIMES A DAY
     Route: 065
  8. OMEPRAZOLE. [Suspect]
     Active Substance: OMEPRAZOLE
     Route: 048

REACTIONS (10)
  - Thyroid cancer [Unknown]
  - Irritable bowel syndrome [Unknown]
  - Injection site pain [Unknown]
  - Glycosylated haemoglobin increased [Unknown]
  - Injury associated with device [Unknown]
  - Haemorrhage [Unknown]
  - Atrial fibrillation [Unknown]
  - Increased tendency to bruise [Unknown]
  - Bleeding time prolonged [Unknown]
  - Wound [Unknown]
